FAERS Safety Report 10388825 (Version 1)
Quarter: 2014Q3

REPORT INFORMATION
  Report Type: Spontaneous
  Country: BR (occurrence: BR)
  Receive Date: 20140816
  Receipt Date: 20140816
  Transmission Date: 20150326
  Serious: Yes (Hospitalization)
  Sender: FDA-Public Use
  Company Number: BR-ABBVIE-14K-020-1270905-00

PATIENT
  Age: 29 Year
  Sex: Female
  Weight: 49 kg

DRUGS (6)
  1. HUMIRA [Suspect]
     Active Substance: ADALIMUMAB
     Route: 058
  2. AZATHIOPRINE. [Concomitant]
     Active Substance: AZATHIOPRINE
     Indication: CROHN^S DISEASE
     Route: 048
     Dates: start: 20131121, end: 20140401
  3. MODULEN [Concomitant]
     Indication: CROHN^S DISEASE
     Dosage: 1 GLASS A DAY
     Route: 048
     Dates: start: 201311
  4. IMMUNOSUPPRESSANTS [Suspect]
     Active Substance: UNSPECIFIED INGREDIENT
     Indication: PRODUCT USED FOR UNKNOWN INDICATION
  5. MESALAZINE [Concomitant]
     Active Substance: MESALAMINE
     Indication: CROHN^S DISEASE
     Route: 048
     Dates: start: 201311
  6. HUMIRA [Suspect]
     Active Substance: ADALIMUMAB
     Indication: CROHN^S DISEASE
     Dosage: UNSPECIFIED INDUCTION DOSE
     Route: 058
     Dates: start: 201201

REACTIONS (29)
  - Allergic respiratory symptom [Recovered/Resolved]
  - Discomfort [Not Recovered/Not Resolved]
  - Inappropriate schedule of drug administration [Unknown]
  - Endometriosis [Recovered/Resolved]
  - Skin irritation [Not Recovered/Not Resolved]
  - Eye pain [Recovering/Resolving]
  - Eye inflammation [Recovering/Resolving]
  - Blepharitis [Not Recovered/Not Resolved]
  - Dry skin [Not Recovered/Not Resolved]
  - Ocular hyperaemia [Not Recovered/Not Resolved]
  - Keratitis [Recovering/Resolving]
  - Pharyngeal inflammation [Recovered/Resolved]
  - Eye irritation [Not Recovered/Not Resolved]
  - Crohn^s disease [Recovering/Resolving]
  - Hypersensitivity [Recovered/Resolved]
  - Genital infection fungal [Not Recovered/Not Resolved]
  - Skin fissures [Not Recovered/Not Resolved]
  - Fistula [Recovered/Resolved]
  - Skin wound [Not Recovered/Not Resolved]
  - Weight decreased [Recovering/Resolving]
  - Hypophagia [Recovering/Resolving]
  - Immunodeficiency [Unknown]
  - Lipoma [Recovered/Resolved]
  - Rhinitis allergic [Not Recovered/Not Resolved]
  - Pruritus [Not Recovered/Not Resolved]
  - Cheilitis [Unknown]
  - Dry skin [Not Recovered/Not Resolved]
  - Pharyngeal oedema [Recovered/Resolved]
  - Impaired healing [Not Recovered/Not Resolved]

NARRATIVE: CASE EVENT DATE: 2012
